FAERS Safety Report 9727607 (Version 4)
Quarter: 2014Q1

REPORT INFORMATION
  Report Type: Spontaneous
  Country: GB (occurrence: GB)
  Receive Date: 20131203
  Receipt Date: 20140208
  Transmission Date: 20141002
  Serious: Yes (Life-Threatening, Other)
  Sender: FDA-Public Use
  Company Number: GB-BAXTER-2013BAX047052

PATIENT
  Sex: Male
  Weight: 122 kg

DRUGS (6)
  1. KIOVIG 100 MG/ML SOLUTION FOR INFUSION [Suspect]
     Indication: HYPERSENSITIVITY VASCULITIS
     Dosage: 40 G/D
     Route: 042
     Dates: start: 20110620, end: 20110625
  2. KIOVIG 100 MG/ML SOLUTION FOR INFUSION [Suspect]
     Indication: OFF LABEL USE
  3. PREDNISOLONE [Concomitant]
     Indication: HYPERSENSITIVITY VASCULITIS
     Route: 048
     Dates: start: 20100101
  4. OMEPRAZOLE [Concomitant]
     Indication: PROPHYLAXIS AGAINST GASTROINTESTINAL ULCER
     Route: 048
     Dates: start: 20100301
  5. TEMAZEPAM [Concomitant]
     Indication: INSOMNIA
     Route: 048
     Dates: start: 20100301
  6. OCTAGAM [Concomitant]
     Indication: PRODUCT USED FOR UNKNOWN INDICATION
     Route: 065

REACTIONS (2)
  - Deep vein thrombosis [Not Recovered/Not Resolved]
  - Intermittent claudication [Recovered/Resolved]
